FAERS Safety Report 18466179 (Version 1)
Quarter: 2020Q4

REPORT INFORMATION
  Report Type: Spontaneous
  Country: US (occurrence: US)
  Receive Date: 20201105
  Receipt Date: 20201105
  Transmission Date: 20210114
  Serious: Yes (Other)
  Sender: FDA-Public Use
  Company Number: US-SA-2020SA309179

PATIENT

DRUGS (4)
  1. DUPIXENT [Suspect]
     Active Substance: DUPILUMAB
     Indication: ASTHMA
     Dosage: UNK, 1X, LOADING DOSE
  2. DUPIXENT [Suspect]
     Active Substance: DUPILUMAB
     Dosage: UNK, MAINTAINANCE DOSE
  3. NUCALA [Suspect]
     Active Substance: MEPOLIZUMAB
     Dosage: UNK
  4. NUCALA [Suspect]
     Active Substance: MEPOLIZUMAB
     Dosage: UNK, RESTARTED

REACTIONS (7)
  - Rhinitis [Unknown]
  - Selective IgG subclass deficiency [Unknown]
  - Bronchiectasis [Unknown]
  - Pruritus [Unknown]
  - Eczema [Unknown]
  - Asthma [Unknown]
  - Infection [Unknown]
